FAERS Safety Report 5243199-X (Version None)
Quarter: 2007Q1

REPORT INFORMATION
  Report Type: 
  Country: None (occurrence: None)
  Receive Date: 20070221
  Receipt Date: 20070214
  Transmission Date: 20070707
  Serious: Yes (Life-Threatening, Hospitalization)
  Sender: FDA-Public Use
  Company Number: US-PFIZER INC-2006056261

PATIENT
  Sex: Male
  Weight: 109.3 kg

DRUGS (4)
  1. ATORVASTATIN [Suspect]
     Indication: MIXED HYPERLIPIDAEMIA
     Route: 048
     Dates: start: 20040701, end: 20040920
  2. ATORVASTATIN [Suspect]
     Route: 048
     Dates: start: 20040921, end: 20060301
  3. VITAMIN CAP [Concomitant]
     Route: 048
  4. ASPIRIN [Concomitant]
     Route: 048

REACTIONS (1)
  - LYMPHOMA [None]
